FAERS Safety Report 9006766 (Version 2)
Quarter: 2013Q1

REPORT INFORMATION
  Report Type: Report from Study
  Country: US (occurrence: US)
  Receive Date: 20130110
  Receipt Date: 20130219
  Transmission Date: 20140127
  Serious: Yes (Hospitalization, Disabling)
  Sender: FDA-Public Use
  Company Number: US-ROCHE-1177009

PATIENT
  Age: 70 Year
  Sex: Male
  Weight: 111.7 kg

DRUGS (20)
  1. RITUXIMAB [Suspect]
     Indication: GRANULOMATOSIS WITH POLYANGIITIS
     Dosage: LAST DOSE PRIOR TO SAE: 02/NOV/2012
     Route: 042
     Dates: start: 20121102
  2. NORVASC [Concomitant]
     Route: 048
     Dates: start: 20121029
  3. ASPIRIN [Concomitant]
     Route: 048
     Dates: start: 20121029, end: 20121120
  4. BACTRIM [Concomitant]
     Indication: GRANULOMATOSIS WITH POLYANGIITIS
     Dosage: STRENGTH 400/80MG
     Route: 048
     Dates: start: 20121031
  5. BACTRIM [Concomitant]
     Dosage: D/S STREGTH 160/800MG
     Route: 048
     Dates: start: 20121031
  6. BACTROBAN [Concomitant]
     Route: 061
     Dates: start: 20121031
  7. COUMADIN [Concomitant]
     Route: 048
     Dates: start: 20121031
  8. COUMADIN [Concomitant]
     Route: 048
     Dates: start: 20121115
  9. JALYN [Concomitant]
     Route: 048
     Dates: start: 20121029
  10. LASIX [Concomitant]
     Route: 048
     Dates: start: 20121029, end: 20121120
  11. LEVOTHYROXINE [Concomitant]
     Route: 048
     Dates: start: 20121029
  12. LIPITOR [Concomitant]
     Route: 048
     Dates: start: 20121029
  13. NIACIN SUSTAINED RELEASE [Concomitant]
     Route: 048
     Dates: start: 20121029
  14. NOVOLOG [Concomitant]
     Route: 058
     Dates: start: 20121029
  15. PREDNISONE [Concomitant]
     Indication: GRANULOMATOSIS WITH POLYANGIITIS
     Route: 048
     Dates: start: 20121029, end: 20121126
  16. ROSE GERANIUM [Concomitant]
     Indication: GRANULOMATOSIS WITH POLYANGIITIS
     Route: 050
     Dates: start: 20121031
  17. ACETAMINOPHEN [Concomitant]
     Route: 048
     Dates: start: 20121102, end: 20121102
  18. DIPHENHYDRAMINE [Concomitant]
     Route: 048
     Dates: start: 20121102, end: 20121102
  19. CEFAZOLIN [Concomitant]
     Route: 048
     Dates: start: 20121114, end: 20121114
  20. FENTANYL [Concomitant]
     Route: 048
     Dates: start: 20121114, end: 20121114

REACTIONS (2)
  - Orthostatic hypotension [Recovered/Resolved]
  - Normochromic normocytic anaemia [Unknown]
